FAERS Safety Report 9564847 (Version 2)
Quarter: 2013Q4

REPORT INFORMATION
  Report Type: Spontaneous
  Country: BR (occurrence: BR)
  Receive Date: 20130930
  Receipt Date: 20131219
  Transmission Date: 20140711
  Serious: Yes (Other)
  Sender: FDA-Public Use
  Company Number: PHHY2013BR108304

PATIENT
  Sex: Female

DRUGS (3)
  1. RASILEZ [Suspect]
     Indication: HYPERTENSION
     Dosage: 2 DF (150MG), DAILY
     Route: 048
  2. LYRICA [Concomitant]
     Indication: FIBROMYALGIA
     Dosage: 2 DF (75MG), DAILY
     Route: 048
  3. PROPANOLOL [Concomitant]
     Indication: FIBROMYALGIA
     Dosage: 2 DF (10MG), DAILY
     Route: 048

REACTIONS (1)
  - Ehlers-Danlos syndrome [Recovering/Resolving]
